FAERS Safety Report 17731706 (Version 1)
Quarter: 2020Q2

REPORT INFORMATION
  Report Type: Spontaneous
  Country: US (occurrence: US)
  Receive Date: 20200501
  Receipt Date: 20200501
  Transmission Date: 20200714
  Serious: No
  Sender: FDA-Public Use
  Company Number: US-SA-2020SA113024

PATIENT
  Sex: Male

DRUGS (2)
  1. LANTUS [Suspect]
     Active Substance: INSULIN GLARGINE
     Route: 065
  2. NOVOLOG [Suspect]
     Active Substance: INSULIN ASPART
     Route: 065

REACTIONS (2)
  - Glycosylated haemoglobin increased [Unknown]
  - Blood glucose increased [Unknown]
